FAERS Safety Report 20864845 (Version 1)
Quarter: 2022Q2

REPORT INFORMATION
  Report Type: Spontaneous
  Country: US (occurrence: US)
  Receive Date: 20220524
  Receipt Date: 20220524
  Transmission Date: 20220721
  Serious: Yes (Other)
  Sender: FDA-Public Use
  Company Number: US-drreddys-SPO/USA/22/0150130

PATIENT
  Age: 21 Year
  Sex: Female

DRUGS (1)
  1. ZENATANE [Suspect]
     Active Substance: ISOTRETINOIN
     Indication: Product used for unknown indication
     Dosage: RMA ISSUE DATE: 02 DECEMBER 2021 12:31:20 PM, 12 JANUARY 2022 03:56:44 PM, 14 FEBRUARY 2022 04:59:06

REACTIONS (1)
  - Mood altered [Unknown]
